FAERS Safety Report 8395133 (Version 5)
Quarter: 2012Q4

REPORT INFORMATION
  Report Type: Report from Study
  Country: BD (occurrence: BD)
  Receive Date: 20120208
  Receipt Date: 20120828
  Transmission Date: 20130627
  Serious: Yes (Other)
  Sender: FDA-Public Use
  Company Number: BD-ASTELLAS-2012US001526

PATIENT
  Age: 30 Year
  Sex: Female

DRUGS (1)
  1. AMBISOME [Suspect]
     Indication: VISCERAL LEISHMANIASIS
     Dosage: UNK
     Route: 065

REACTIONS (1)
  - Rhabdomyolysis [Unknown]
